FAERS Safety Report 8122127-3 (Version None)
Quarter: 2012Q1

REPORT INFORMATION
  Report Type: 
  Country: None (occurrence: None)
  Receive Date: 20120208
  Receipt Date: 20120127
  Transmission Date: 20120608
  Serious: Yes (Hospitalization, Disabling, Other)
  Sender: FDA-Public Use
  Company Number: US-BAYER-2011-049672

PATIENT
  Age: 20 Year
  Sex: Female
  Weight: 63 kg

DRUGS (2)
  1. STIMATE [Concomitant]
  2. YAZ [Suspect]
     Indication: CONTRACEPTION
     Dosage: UNK
     Dates: start: 20090101, end: 20090601

REACTIONS (9)
  - GALLBLADDER DISORDER [None]
  - BILIARY DYSKINESIA [None]
  - ANXIETY [None]
  - ANHEDONIA [None]
  - ABDOMINAL PAIN UPPER [None]
  - VOMITING [None]
  - WEIGHT DECREASED [None]
  - INJURY [None]
  - GASTROINTESTINAL DISORDER [None]
